FAERS Safety Report 8525148-1 (Version None)
Quarter: 2012Q3

REPORT INFORMATION
  Report Type: 
  Country: None (occurrence: None)
  Receive Date: 20120720
  Receipt Date: 20120710
  Transmission Date: 20120928
  Serious: Yes (Other)
  Sender: FDA-Public Use
  Company Number: PHHY2012MX061462

PATIENT
  Sex: Female

DRUGS (3)
  1. HIGOTRON [Concomitant]
     Indication: ARRHYTHMIA
     Dosage: UNK, BID
     Dates: start: 20100101
  2. EXFORGE [Suspect]
     Indication: HYPERTENSION
     Dosage: 160 MG OF VALS AND 05 MG OF AMLO
     Route: 048
  3. AKSPRI [Suspect]
     Dosage: 500 MG, QD

REACTIONS (2)
  - MYOCARDIAL INFARCTION [None]
  - CHEST DISCOMFORT [None]
